FAERS Safety Report 22586039 (Version 1)
Quarter: 2023Q2

REPORT INFORMATION
  Report Type: Spontaneous
  Country: DE (occurrence: DE)
  Receive Date: 20230610
  Receipt Date: 20230610
  Transmission Date: 20230722
  Serious: Yes (Hospitalization, Other)
  Sender: FDA-Public Use
  Company Number: DE-BAXTER-2023BAX022675

PATIENT
  Sex: Female
  Weight: 74.1 kg

DRUGS (8)
  1. CYCLOPHOSPHAMIDE [Suspect]
     Active Substance: CYCLOPHOSPHAMIDE
     Indication: Sjogren^s syndrome
     Dosage: RECEIVED ALREADY 4 CYCLES
     Route: 065
     Dates: start: 20230203
  2. CYCLOPHOSPHAMIDE [Suspect]
     Active Substance: CYCLOPHOSPHAMIDE
     Indication: Lung disorder
     Dosage: 1000 MG, ROUTE: INFUSION DILUTED WITH 1000 ML OF 0.9% SODIUM CHLORIDE
     Route: 050
     Dates: start: 20230523
  3. SODIUM CHLORIDE [Suspect]
     Active Substance: SODIUM CHLORIDE
     Indication: Medication dilution
     Dosage: 1000 ML, USED TO DILUTE 1000 MG OF CYCLOPHOSPHAMIDE, ROUTE: INFUSION
     Route: 050
     Dates: start: 20230523
  4. SULFAMETHOXAZOLE\TRIMETHOPRIM [Concomitant]
     Active Substance: SULFAMETHOXAZOLE\TRIMETHOPRIM
     Dosage: 960 MG MON, WED, FRI
     Route: 065
     Dates: start: 20230523
  5. PREDNISOLONE [Concomitant]
     Active Substance: PREDNISOLONE
     Dosage: 5 MG IN THE MORNING
     Route: 065
     Dates: start: 20230523
  6. CHOLECALCIFEROL [Concomitant]
     Active Substance: CHOLECALCIFEROL
     Dosage: 1000, 0-0-1
     Route: 065
     Dates: start: 20230523
  7. SIMVASTATIN [Concomitant]
     Active Substance: SIMVASTATIN
     Dosage: 20 MG 0-0-1
     Route: 065
     Dates: start: 20230523
  8. CANDESARTAN [Concomitant]
     Active Substance: CANDESARTAN
     Dosage: 8 MG 1-0-0
     Route: 065
     Dates: start: 20230523

REACTIONS (5)
  - Infusion related reaction [Unknown]
  - Sjogren^s syndrome [Unknown]
  - Lung disorder [Unknown]
  - C-reactive protein increased [Unknown]
  - Urinary tract infection [Unknown]

NARRATIVE: CASE EVENT DATE: 20230524
